FAERS Safety Report 12627785 (Version 2)
Quarter: 2019Q1

REPORT INFORMATION
  Report Type: Spontaneous
  Country: JP (occurrence: JP)
  Receive Date: 20160806
  Receipt Date: 20190103
  Transmission Date: 20190417
  Serious: Yes (Other)
  Sender: FDA-Public Use
  Company Number: JP-ACCORD-039110

PATIENT
  Age: 42 Year
  Sex: Male

DRUGS (7)
  1. TACROLIMUS. [Suspect]
     Active Substance: TACROLIMUS
     Indication: TRANSPLANT REJECTION
  2. BASILIXIMAB [Suspect]
     Active Substance: BASILIXIMAB
     Indication: TRANSPLANT REJECTION
  3. MYCOPHENOLIC ACID. [Suspect]
     Active Substance: MYCOPHENOLIC ACID
     Indication: TRANSPLANT REJECTION
  4. MUROMONAB-CD3 [Suspect]
     Active Substance: MUROMONAB-CD3
     Indication: TRANSPLANT REJECTION
  5. EVEROLIMUS. [Suspect]
     Active Substance: EVEROLIMUS
     Indication: TRANSPLANT REJECTION
  6. GUSPERIMUS/GUSPERIMUS HYDROCHLORIDE [Suspect]
     Active Substance: GUSPERIMUS
     Indication: TRANSPLANT REJECTION
  7. METHYLPREDNISOLONE. [Suspect]
     Active Substance: METHYLPREDNISOLONE
     Indication: TRANSPLANT REJECTION

REACTIONS (4)
  - Glomerulonephritis proliferative [Recovered/Resolved]
  - Epstein-Barr virus infection [Recovered/Resolved]
  - Arterial disorder [Unknown]
  - Post transplant lymphoproliferative disorder [Recovered/Resolved]
